FAERS Safety Report 9259598 (Version 3)
Quarter: 2014Q1

REPORT INFORMATION
  Report Type: Spontaneous
  Country: US (occurrence: US)
  Receive Date: 20130429
  Receipt Date: 20140205
  Transmission Date: 20141002
  Serious: Yes (Hospitalization, Other)
  Sender: FDA-Public Use
  Company Number: US-ASTRAZENECA-2013SE27634

PATIENT
  Age: 78 Year
  Sex: Female
  Weight: 61.2 kg

DRUGS (13)
  1. NEXIUM [Suspect]
     Indication: DYSPEPSIA
     Route: 048
     Dates: start: 1998, end: 2005
  2. NEXIUM [Suspect]
     Indication: GASTROOESOPHAGEAL REFLUX DISEASE
     Route: 048
     Dates: start: 1998, end: 2005
  3. NEXIUM [Suspect]
     Indication: DYSPEPSIA
     Dosage: ONE PER DAY
     Route: 048
     Dates: start: 1999, end: 2008
  4. NEXIUM [Suspect]
     Indication: GASTROOESOPHAGEAL REFLUX DISEASE
     Dosage: ONE PER DAY
     Route: 048
     Dates: start: 1999, end: 2008
  5. NEXIUM [Suspect]
     Indication: DYSPEPSIA
     Dosage: 20 MG THEN 40 MG DAILY
     Route: 048
     Dates: start: 20060508, end: 2008
  6. NEXIUM [Suspect]
     Indication: GASTROOESOPHAGEAL REFLUX DISEASE
     Dosage: 20 MG THEN 40 MG DAILY
     Route: 048
     Dates: start: 20060508, end: 2008
  7. GAVISCON [Concomitant]
  8. ZOLPIDINE [Concomitant]
     Indication: SLEEP DISORDER
  9. PRAVASTATIN [Concomitant]
  10. FISH OIL/OMEGA 3 [Concomitant]
     Indication: CARDIOVASCULAR DISORDER
  11. CALCIUM/TUMS [Concomitant]
     Indication: BONE DISORDER
  12. VITAMIN D [Concomitant]
     Indication: BONE DISORDER
  13. LIPITOR [Concomitant]

REACTIONS (9)
  - Gallbladder disorder [Unknown]
  - Joint injury [Unknown]
  - Osteoporosis [Unknown]
  - Bone disorder [Unknown]
  - Multiple fractures [Unknown]
  - Osteopenia [Unknown]
  - Ligament sprain [Unknown]
  - Diabetes mellitus [Unknown]
  - Panic attack [Unknown]
